FAERS Safety Report 5489088-7 (Version None)
Quarter: 2007Q4

REPORT INFORMATION
  Report Type: 
  Country: None (occurrence: None)
  Receive Date: 20071018
  Receipt Date: 20070606
  Transmission Date: 20080405
  Serious: No
  Sender: FDA-Public Use
  Company Number: US-KINGPHARMUSA00001-K200700698

PATIENT

DRUGS (2)
  1. SYNERCID [Suspect]
     Route: 042
  2. DAPTOMYCIN [Concomitant]

REACTIONS (1)
  - AGEUSIA [None]
